FAERS Safety Report 6127270-6 (Version None)
Quarter: 2009Q1

REPORT INFORMATION
  Report Type: 
  Country: None (occurrence: None)
  Receive Date: 20090319
  Receipt Date: 20090305
  Transmission Date: 20090719
  Serious: Yes (Hospitalization)
  Sender: FDA-Public Use
  Company Number: 02100-JPN-06-0561

PATIENT
  Age: 77 Year
  Sex: Female

DRUGS (22)
  1. PLAVIX [Suspect]
     Indication: CEREBRAL INFARCTION
     Dosage: 75 MG, DAILY DOSE ORAL
     Route: 048
     Dates: start: 20061102, end: 20061124
  2. PLAVIX [Suspect]
     Indication: CEREBRAL INFARCTION
     Dosage: 75 MG, DAILY DOSE ORAL
     Route: 048
     Dates: start: 20061126
  3. AMMONIUM CHLORIDE (AMMONIUM CHLORIDE) UNKNOWN [Concomitant]
  4. CHLOROPHENIRAMINE MALEATE (CHLOROPHENIRAMINE MALEATE) UNKNOWN [Concomitant]
  5. DEXTROMETHORPHAN HBR (DEXTROMETHORPHAN HBR) UNKNOWN [Concomitant]
  6. METHYLEPHEDRINE HYDROCHLORIDE (METHYLEPHEDRINE HYDROCHLORIDE) UNKNOWN [Concomitant]
  7. CEFAZOLIN SODIUM (CEFAZOLIN SODIUM) UNKNOWN [Concomitant]
  8. CLONIXINE (LYSINATE (CLONIXINE LYSINATE) UNKNOWN [Concomitant]
  9. ACEBROPHYLLINE (ACEBROPHYLLINE) UNKNOWN [Concomitant]
  10. ATORVASTATIN CALCIUM (ATORVASTATIN CALCIUM) UNKNOWN [Concomitant]
  11. ISONIAZID [Concomitant]
  12. RIFAMPICIN [Concomitant]
  13. ASPIRIN (ENTERIC COATED) (ASPIRIN) UNKNOWN [Concomitant]
  14. ETHAMBUTOL HYDROCHLORIDE (ETHAMBUTOL HYDROCHLORIDE) UNKNOWN [Concomitant]
  15. NORMAL SALINE (SODIUM CHLORIDE) UNKNOWN [Concomitant]
  16. PYRAZINAMIDE [Concomitant]
  17. LACTOBACILLUS ACIDOPHILLUS (LACTOBACILLUS ACIDOPHILLUS) UNKNOWN [Concomitant]
  18. MAGNESIUM OXIDE (MAGNESIUM OXIDE) UNKNOWN [Concomitant]
  19. AMLODIPINE BESYLATE [Concomitant]
  20. ESTROGENS (CONJUGATED) (ESTROGENS CONJUGATED) UNKNOWN [Concomitant]
  21. CEFOXIME SODIUM (CEFOXIME SODIUM) UNKNOWN [Concomitant]
  22. PYRIDOXINE HYDROCHLORIDE (PYRIDOXINE HYDROCHLORIDE) UNKNOWN [Concomitant]

REACTIONS (1)
  - VESTIBULAR NEURONITIS [None]
